FAERS Safety Report 6933714-X (Version None)
Quarter: 2010Q3

REPORT INFORMATION
  Report Type: 
  Country: None (occurrence: None)
  Receive Date: 20100820
  Receipt Date: 20100614
  Transmission Date: 20110219
  Serious: No
  Sender: FDA-Public Use
  Company Number: US-BAYER-201026507NA

PATIENT
  Age: 62 Year
  Sex: Male
  Weight: 80 kg

DRUGS (4)
  1. ULTRAVIST 300 [Suspect]
     Indication: APPENDICITIS
     Dosage: TOTAL DAILY DOSE: 120 ML  UNIT DOSE: 200 ML
     Route: 042
     Dates: start: 20100614, end: 20100614
  2. GASTROGRAFIN [Concomitant]
     Indication: COMPUTERISED TOMOGRAM ABDOMEN
     Route: 048
     Dates: start: 20100614, end: 20100614
  3. COLCHICINE [Concomitant]
  4. AMLODIPINE [Concomitant]

REACTIONS (1)
  - URTICARIA [None]
